FAERS Safety Report 16715011 (Version 1)
Quarter: 2019Q3

REPORT INFORMATION
  Report Type: Spontaneous
  Country: US (occurrence: US)
  Receive Date: 20190819
  Receipt Date: 20190819
  Transmission Date: 20191005
  Serious: No
  Sender: FDA-Public Use
  Company Number: US-009507513-1907USA013687

PATIENT
  Age: 50 Year
  Sex: Male
  Weight: 74 kg

DRUGS (1)
  1. NOXAFIL [Suspect]
     Active Substance: POSACONAZOLE
     Indication: BLASTOMYCOSIS
     Dosage: 400 MILLIGRAM, Q12H
     Route: 042

REACTIONS (2)
  - Off label use [Unknown]
  - Incorrect route of product administration [Unknown]
